FAERS Safety Report 4741474-6 (Version None)
Quarter: 2005Q3

REPORT INFORMATION
  Report Type: 
  Country: None (occurrence: None)
  Receive Date: 20050808
  Receipt Date: 20050719
  Transmission Date: 20060218
  Serious: Yes (Other)
  Sender: FDA-Public Use
  Company Number: 26854

PATIENT
  Age: 66 Year
  Sex: Male

DRUGS (1)
  1. ALDARA [Suspect]
     Indication: ACTINIC KERATOSIS
     Dosage: (1 IN 2 WEEK(S)), TOPICAL
     Route: 061
     Dates: start: 20050525, end: 20050612

REACTIONS (7)
  - DIARRHOEA [None]
  - DIZZINESS [None]
  - HAEMATOCHEZIA [None]
  - HELICOBACTER GASTRITIS [None]
  - INAPPROPRIATE SCHEDULE OF DRUG ADMINISTRATION [None]
  - INFLUENZA LIKE ILLNESS [None]
  - OVERDOSE [None]
